FAERS Safety Report 11423020 (Version 1)
Quarter: 2015Q3

REPORT INFORMATION
  Report Type: Spontaneous
  Country: US (occurrence: US)
  Receive Date: 20150827
  Receipt Date: 20150827
  Transmission Date: 20151125
  Serious: No
  Sender: FDA-Public Use
  Company Number: US-GUERBET LLC-1041418

PATIENT
  Age: 80 Year
  Sex: Female

DRUGS (5)
  1. OXILAN [Suspect]
     Active Substance: IOXILAN
     Indication: ARTERIAL CATHETERISATION
     Route: 042
     Dates: start: 20120127, end: 20120127
  2. ANGIOMAX [Suspect]
     Active Substance: BIVALIRUDIN
     Route: 042
  3. MIDAZOLAM [Suspect]
     Active Substance: MIDAZOLAM\MIDAZOLAM HYDROCHLORIDE
     Route: 065
  4. HEPARIN [Suspect]
     Active Substance: HEPARIN SODIUM
     Route: 042
  5. VERAPAMIL [Suspect]
     Active Substance: VERAPAMIL HYDROCHLORIDE
     Route: 042

REACTIONS (3)
  - Nausea [Recovered/Resolved]
  - Headache [Recovered/Resolved]
  - Tremor [Recovered/Resolved]

NARRATIVE: CASE EVENT DATE: 20120127
